FAERS Safety Report 23514865 (Version 4)
Quarter: 2024Q1

REPORT INFORMATION
  Report Type: Report from Study
  Country: CA (occurrence: CA)
  Receive Date: 20240212
  Receipt Date: 20240328
  Transmission Date: 20240409
  Serious: Yes (Other)
  Sender: FDA-Public Use
  Company Number: CA-JNJFOC-20240108458

PATIENT
  Age: 22 Year
  Sex: Female

DRUGS (2)
  1. REMICADE [Suspect]
     Active Substance: INFLIXIMAB
     Indication: Crohn^s disease
     Dosage: DOSAGE ALSO REPORTED AS 10 MG/KG
     Route: 041
  2. REMICADE [Suspect]
     Active Substance: INFLIXIMAB
     Dosage: DOSAGE ALSO REPORTED AS 10 MG/KG
     Route: 041
     Dates: start: 20180315

REACTIONS (12)
  - Melaena [Not Recovered/Not Resolved]
  - Crohn^s disease [Recovering/Resolving]
  - Influenza like illness [Recovering/Resolving]
  - Inappropriate schedule of product administration [Unknown]
  - Sinusitis [Recovering/Resolving]
  - Streptococcal infection [Recovering/Resolving]
  - Conjunctivitis [Recovered/Resolved]
  - Rhinitis [Recovering/Resolving]
  - Nausea [Recovered/Resolved]
  - Vomiting [Recovered/Resolved]
  - Anal fissure [Unknown]
  - Abdominal pain [Recovered/Resolved]

NARRATIVE: CASE EVENT DATE: 20231201
